FAERS Safety Report 5412217-8 (Version None)
Quarter: 2007Q3

REPORT INFORMATION
  Report Type: 
  Country: None (occurrence: None)
  Receive Date: 20070809
  Receipt Date: 20070731
  Transmission Date: 20080115
  Serious: Yes (Death, Life-Threatening, Hospitalization, Other)
  Sender: FDA-Public Use
  Company Number: 2007SP015498

PATIENT
  Age: 44 Year
  Sex: Male
  Weight: 65.7716 kg

DRUGS (2)
  1. PEG-INTRON [Suspect]
     Indication: HEPATITIS C
     Dates: end: 20070411
  2. REBETOL [Suspect]
     Indication: HEPATITIS C
     Dosage: PO
     Route: 048
     Dates: end: 20070411

REACTIONS (25)
  - ABDOMINAL PAIN UPPER [None]
  - AGITATION [None]
  - AMYLOIDOSIS [None]
  - APNOEA [None]
  - AZOTAEMIA [None]
  - CACHEXIA [None]
  - CHILLS [None]
  - CHOLECYSTITIS ACUTE [None]
  - DELIRIUM [None]
  - DIASTOLIC DYSFUNCTION [None]
  - FATIGUE [None]
  - HEPATIC ENCEPHALOPATHY [None]
  - HEPATORENAL SYNDROME [None]
  - HYPERCALCAEMIA [None]
  - HYPOTHYROIDISM [None]
  - LEUKOCYTOSIS [None]
  - LIVER DISORDER [None]
  - MENTAL STATUS CHANGES [None]
  - MULTI-ORGAN FAILURE [None]
  - PYREXIA [None]
  - RENAL AMYLOIDOSIS [None]
  - RENAL FAILURE ACUTE [None]
  - RESPIRATORY FAILURE [None]
  - SPIDER NAEVUS [None]
  - THERAPEUTIC RESPONSE DECREASED [None]
